FAERS Safety Report 7121272-9 (Version None)
Quarter: 2010Q4

REPORT INFORMATION
  Report Type: 
  Country: None (occurrence: None)
  Receive Date: 20101124
  Receipt Date: 20101112
  Transmission Date: 20110411
  Serious: Yes (Other)
  Sender: FDA-Public Use
  Company Number: US-GENZYME-CAMP-1001143

PATIENT

DRUGS (8)
  1. CAMPATH [Suspect]
     Indication: KIDNEY TRANSPLANT REJECTION
     Dosage: 0.3 MG/KG, ONCE
     Route: 042
  2. METHYLPREDNISOLONE [Concomitant]
     Indication: KIDNEY TRANSPLANT REJECTION
  3. THYMOGLOBULIN [Concomitant]
     Indication: KIDNEY TRANSPLANT REJECTION
  4. IMMUNE GLOBULIN NOS [Concomitant]
     Indication: KIDNEY TRANSPLANT REJECTION
     Route: 042
  5. RITUXIMAB [Concomitant]
     Indication: KIDNEY TRANSPLANT REJECTION
  6. PREDNISONE [Concomitant]
     Indication: IMMUNOSUPPRESSANT DRUG THERAPY
  7. TACROLIMUS [Concomitant]
     Indication: IMMUNOSUPPRESSANT DRUG THERAPY
  8. MYCOPHENOLATE MOFETIL [Concomitant]
     Indication: IMMUNOSUPPRESSANT DRUG THERAPY

REACTIONS (1)
  - PERITONITIS BACTERIAL [None]
